FAERS Safety Report 4592933-0 (Version None)
Quarter: 2005Q1

REPORT INFORMATION
  Report Type: 
  Country: None (occurrence: None)
  Receive Date: 20050228
  Receipt Date: 20050117
  Transmission Date: 20050727
  Serious: Yes (Other)
  Sender: FDA-Public Use
  Company Number: FR-GLAXOSMITHKLINE-B0364887A

PATIENT
  Age: 77 Year
  Sex: Female
  Weight: 59 kg

DRUGS (5)
  1. LAMICTAL [Suspect]
     Indication: EPILEPSY
     Route: 048
     Dates: start: 20040601
  2. MEMANTINE HCL [Suspect]
     Indication: DEMENTIA ALZHEIMER'S TYPE
     Dosage: 2TAB PER DAY
     Route: 048
     Dates: start: 20030101
  3. REMINYL [Concomitant]
     Indication: DEMENTIA ALZHEIMER'S TYPE
     Route: 048
  4. TAHOR [Concomitant]
     Route: 048
     Dates: end: 20041201
  5. EXELON [Concomitant]
     Indication: DEMENTIA ALZHEIMER'S TYPE
     Dosage: 2CAP PER DAY
     Route: 048
     Dates: start: 20020101

REACTIONS (3)
  - EPILEPSY [None]
  - HYPERSOMNIA [None]
  - MUSCULOSKELETAL STIFFNESS [None]
